FAERS Safety Report 21549202 (Version 24)
Quarter: 2025Q2

REPORT INFORMATION
  Report Type: Spontaneous
  Country: US (occurrence: US)
  Receive Date: 20221103
  Receipt Date: 20250423
  Transmission Date: 20250717
  Serious: Yes (Hospitalization)
  Sender: PFIZER
  Company Number: US-PFIZER INC-PV202200094467

PATIENT
  Age: 42 Year
  Sex: Female
  Weight: 70.295 kg

DRUGS (2)
  1. PREMPRO [Suspect]
     Active Substance: ESTROGENS, CONJUGATED\MEDROXYPROGESTERONE ACETATE
     Indication: Perinatal depression
     Dosage: 0.625 MG/5 MG
     Dates: start: 197809
  2. PREMPRO [Suspect]
     Active Substance: ESTROGENS, CONJUGATED\MEDROXYPROGESTERONE ACETATE
     Dosage: 0.625MG/5MG, EVERY MORNING
     Route: 048

REACTIONS (14)
  - Feeling abnormal [Unknown]
  - Off label use [Unknown]
  - Product dispensing error [Unknown]
  - Intentional product use issue [Unknown]
  - Exostosis [Unknown]
  - Gait disturbance [Unknown]
  - Memory impairment [Unknown]
  - Depression [Unknown]
  - Hyperhidrosis [Unknown]
  - Menopausal depression [Unknown]
  - Mood altered [Unknown]
  - Menopause [Unknown]
  - Osteoporosis [Unknown]
  - Gait inability [Unknown]

NARRATIVE: CASE EVENT DATE: 19780901
